FAERS Safety Report 8585634 (Version 14)
Quarter: 2015Q2

REPORT INFORMATION
  Report Type: Spontaneous
  Country: US (occurrence: US)
  Receive Date: 20120530
  Receipt Date: 20150417
  Transmission Date: 20150821
  Serious: Yes (Death, Hospitalization, Other)
  Sender: FDA-Public Use
  Company Number: US-GLAXOSMITHKLINE-A0945200A

PATIENT
  Age: 56 Year
  Sex: Female
  Weight: 73 kg

DRUGS (24)
  1. FLOLAN [Suspect]
     Active Substance: EPOPROSTENOL SODIUM
     Indication: PULMONARY ARTERIAL HYPERTENSION
     Dosage: UNK
     Dates: start: 20060612
  2. FLOLAN [Suspect]
     Active Substance: EPOPROSTENOL SODIUM
     Dosage: UNK
     Dates: start: 20060612
  3. FLOLAN [Suspect]
     Active Substance: EPOPROSTENOL SODIUM
     Dosage: UNK
     Dates: start: 20070213
  4. XANAX [Concomitant]
     Active Substance: ALPRAZOLAM
  5. POTASSIUM [Concomitant]
     Active Substance: POTASSIUM
     Dosage: UNK
  6. VITAMIN D [Concomitant]
     Active Substance: CHOLECALCIFEROL
  7. FLOLAN [Suspect]
     Active Substance: EPOPROSTENOL SODIUM
     Dosage: UNK
     Dates: start: 20060612
  8. FLOLAN [Suspect]
     Active Substance: EPOPROSTENOL SODIUM
     Dosage: 80 NG/KG/MIN, CONCENTRATION 90,000 NG/ML, PUMP RATE 93 ML/DAY, VIAL STRENGTH 1.5 MG, CO
     Route: 042
  9. PERCOCET [Concomitant]
     Active Substance: ACETAMINOPHEN\OXYCODONE HYDROCHLORIDE
  10. LASIX [Concomitant]
     Active Substance: FUROSEMIDE
  11. SYNTHROID [Concomitant]
     Active Substance: LEVOTHYROXINE SODIUM
  12. FLOLAN [Suspect]
     Active Substance: EPOPROSTENOL SODIUM
     Dosage: UNK
     Dates: start: 20060612
  13. FLOLAN [Suspect]
     Active Substance: EPOPROSTENOL SODIUM
     Dosage: UNK
     Dates: start: 20060612
  14. FLOLAN [Suspect]
     Active Substance: EPOPROSTENOL SODIUM
     Dosage: UNK
     Dates: start: 20060612
  15. FERROUS SULFATE [Concomitant]
     Active Substance: FERROUS SULFATE\FERROUS SULFATE, DRIED
     Dosage: UNK
  16. CALCIUM [Concomitant]
     Active Substance: CALCIUM
  17. WARFARIN [Concomitant]
     Active Substance: WARFARIN
  18. FENTANYL. [Concomitant]
     Active Substance: FENTANYL
     Dosage: UNK
  19. ATROPINE + DIPHENOXYLATE [Concomitant]
     Active Substance: ATROPINE\DIPHENOXYLATE
  20. TRACLEER [Concomitant]
     Active Substance: BOSENTAN\BOSENTAN MONOHYDRATE
  21. FLOLAN [Suspect]
     Active Substance: EPOPROSTENOL SODIUM
     Indication: PULMONARY ARTERIAL HYPERTENSION
     Dosage: 60 NG/KG/MIN CONTINUOUSLYCONCENTRATION: 75,000 NG/MLVIAL STRENGTH: 1.5 MGDOSE: 60 NG/KG/M[...]
     Route: 065
     Dates: start: 20060612
  22. FLOLAN [Suspect]
     Active Substance: EPOPROSTENOL SODIUM
     Dosage: 82 NG/KG/MIN CONTINUOUSLY
     Route: 042
  23. ALENDRONATE [Concomitant]
     Active Substance: ALENDRONATE SODIUM
     Dosage: UNK
  24. COUMADIN [Concomitant]
     Active Substance: WARFARIN SODIUM

REACTIONS (22)
  - Gastrointestinal disorder [Unknown]
  - Hyperhidrosis [Unknown]
  - Rash erythematous [Not Recovered/Not Resolved]
  - Hypoxia [Unknown]
  - Hypoxia [Unknown]
  - Pain in extremity [Not Recovered/Not Resolved]
  - Contusion [Unknown]
  - Dyspnoea [Unknown]
  - Infusion site swelling [Unknown]
  - Feeling hot [Unknown]
  - Pneumonia [Unknown]
  - Oxygen saturation abnormal [Unknown]
  - Vasculitis [Unknown]
  - Erythema [Unknown]
  - Fluid overload [Unknown]
  - Imprisonment [Unknown]
  - Pulmonary hypertension [Not Recovered/Not Resolved]
  - Death [Fatal]
  - Infusion site erythema [Unknown]
  - Back pain [Unknown]
  - Fatigue [Not Recovered/Not Resolved]
  - Respiratory syncytial virus infection [Unknown]

NARRATIVE: CASE EVENT DATE: 20150202
